FAERS Safety Report 10868982 (Version 1)
Quarter: 2015Q1

REPORT INFORMATION
  Report Type: Spontaneous
  Country: US (occurrence: US)
  Receive Date: 20150225
  Receipt Date: 20150225
  Transmission Date: 20150721
  Serious: No
  Sender: FDA-Public Use
  Company Number: US-MYLANLABS-US2014027662

PATIENT
  Sex: Female

DRUGS (4)
  1. VANCOMYCIN [Suspect]
     Active Substance: VANCOMYCIN
     Dosage: UNK
  2. MACRODANTIN [Suspect]
     Active Substance: NITROFURANTOIN
     Dosage: UNK
  3. PROCARDIA [Suspect]
     Active Substance: NIFEDIPINE
     Dosage: UNK
  4. RELAFEN [Suspect]
     Active Substance: NABUMETONE
     Dosage: UNK

REACTIONS (1)
  - Drug hypersensitivity [Unknown]
